FAERS Safety Report 4817082-5 (Version None)
Quarter: 2005Q4

REPORT INFORMATION
  Report Type: 
  Country: None (occurrence: None)
  Receive Date: 20051101
  Receipt Date: 20050721
  Transmission Date: 20060501
  Serious: Yes (Hospitalization)
  Sender: FDA-Public Use
  Company Number: US-BRISTOL-MYERS SQUIBB COMPANY-13046594

PATIENT
  Age: 58 Year
  Sex: Male
  Weight: 100 kg

DRUGS (3)
  1. CETUXIMAB [Suspect]
     Indication: COLON CANCER
     Dosage: THERAPY INITIATED ON 08-JUL-2005.  DISCONTINUED FROM STUDY ON 21-JUL-2005.
     Route: 042
     Dates: start: 20050714, end: 20050714
  2. IRINOTECAN [Suspect]
     Indication: COLON CANCER
     Dosage: THERAPY INITIATED ON 08-JUL-2005.  DISCONTINUED FROM STUDY ON 21-JUL-2005.
     Route: 042
     Dates: start: 20050708, end: 20050708
  3. CAPECITABINE [Suspect]
     Indication: COLON CANCER
     Dosage: THERAPY INITIATED ON 08-JUL-2005.  DISCONTINUED FROM STUDY ON 21-JUL-2005.
     Route: 048
     Dates: start: 20050708, end: 20050709

REACTIONS (1)
  - ILEUS [None]
